FAERS Safety Report 9166337 (Version 3)
Quarter: 2013Q2

REPORT INFORMATION
  Report Type: Spontaneous
  Country: US (occurrence: US)
  Receive Date: 20130315
  Receipt Date: 20130506
  Transmission Date: 20140414
  Serious: Yes (Hospitalization, Other)
  Sender: FDA-Public Use
  Company Number: US-PFIZER INC-2013084121

PATIENT
  Age: 72 Year
  Sex: Female
  Weight: 93 kg

DRUGS (2)
  1. BOSULIF [Suspect]
     Indication: LEUKAEMIA
     Dosage: 300 MG (100 MG 3 TABLETS), 1X/DAY
     Route: 048
     Dates: start: 20121205, end: 20121220
  2. BOSULIF [Suspect]
     Indication: CHRONIC MYELOID LEUKAEMIA
     Dosage: 300 MG, 1X/DAY
     Route: 048
     Dates: start: 20130103

REACTIONS (10)
  - Oedema [Recovered/Resolved]
  - Diarrhoea [Recovered/Resolved]
  - Abdominal pain upper [Recovered/Resolved]
  - Weight increased [Recovered/Resolved]
  - Renal disorder [Recovered/Resolved]
  - Liver disorder [Recovered/Resolved]
  - Somnolence [Recovered/Resolved]
  - Iron deficiency [Recovered/Resolved]
  - Bronchitis [Recovered/Resolved]
  - Drug intolerance [Unknown]
